FAERS Safety Report 5311427-8 (Version None)
Quarter: 2007Q2

REPORT INFORMATION
  Report Type: 
  Country: None (occurrence: None)
  Receive Date: 20070430
  Receipt Date: 20070420
  Transmission Date: 20071010
  Serious: Yes (Life-Threatening, Hospitalization, Disabling, Other)
  Sender: FDA-Public Use
  Company Number: US-JNJFOC-20070300537

PATIENT
  Sex: Male
  Weight: 76.4 kg

DRUGS (28)
  1. TMC125 [Suspect]
     Indication: HIV INFECTION
     Dosage: TEMPORARY STOP
     Route: 048
  2. TMC114 [Suspect]
     Route: 048
  3. TMC114 [Suspect]
     Indication: HIV INFECTION
     Route: 048
  4. RITONAVIR [Suspect]
     Indication: HIV INFECTION
     Route: 048
  5. TENOFOVIR [Suspect]
     Indication: HIV INFECTION
     Route: 048
  6. COMBIVIR [Concomitant]
     Indication: HIV INFECTION
     Route: 048
  7. TRIAMTERENE AND HYDROCHLOROTHIAZIDE [Concomitant]
     Indication: HYPERTENSION
     Route: 048
  8. K-DUR 10 [Concomitant]
     Indication: MINERAL SUPPLEMENTATION
     Route: 048
  9. BACTRIM DS [Concomitant]
     Indication: ANTIFUNGAL PROPHYLAXIS
     Route: 048
  10. ZITHROMAX [Concomitant]
     Indication: OPPORTUNISTIC INFECTION PROPHYLAXIS
     Route: 048
  11. MYCELEX [Concomitant]
     Indication: CANDIDIASIS
     Route: 048
  12. NYSTATIN [Concomitant]
     Indication: CANDIDIASIS
     Route: 048
  13. MSIR [Concomitant]
     Indication: PAIN MANAGEMENT
     Route: 048
  14. ZANTAC [Concomitant]
     Indication: DUODENITIS
     Route: 048
  15. ANDROGEL [Concomitant]
     Indication: ENERGY INCREASED
     Route: 061
  16. RITALIN [Concomitant]
     Indication: ENERGY INCREASED
     Route: 048
  17. KLONOPIN [Concomitant]
     Indication: ANXIETY
     Route: 048
  18. PROZAC [Concomitant]
     Indication: DEPRESSION
     Route: 048
  19. WELLBUTRIN SR [Concomitant]
     Indication: DEPRESSION
     Route: 048
  20. TRAZODONE HCL [Concomitant]
     Indication: DEPRESSION
     Route: 048
  21. MS CONTIN [Concomitant]
     Indication: PAIN MANAGEMENT
     Route: 048
  22. LIDODERM [Concomitant]
     Indication: PAIN MANAGEMENT
     Route: 061
  23. COMPAZINE [Concomitant]
     Indication: NAUSEA
     Route: 054
  24. NEURONTIN [Concomitant]
     Route: 048
  25. PERCOCET [Concomitant]
     Route: 048
  26. FLUCONAZOLE [Concomitant]
     Route: 048
  27. FLUCONAZOLE [Concomitant]
     Indication: ANTIFUNGAL PROPHYLAXIS
     Route: 048
  28. LOMOTIL [Concomitant]
     Indication: DIARRHOEA
     Route: 048

REACTIONS (3)
  - CARDIAC FAILURE CONGESTIVE [None]
  - HIP FRACTURE [None]
  - RENAL FAILURE [None]
